FAERS Safety Report 8538344-4 (Version None)
Quarter: 2012Q3

REPORT INFORMATION
  Report Type: 
  Country: None (occurrence: None)
  Receive Date: 20120726
  Receipt Date: 20120723
  Transmission Date: 20120928
  Serious: No
  Sender: FDA-Public Use
  Company Number: US-009507513-1207USA008997

PATIENT

DRUGS (4)
  1. PEG-INTRON [Suspect]
  2. PROCRIT [Concomitant]
     Dosage: UNK
  3. VICTRELIS [Suspect]
     Indication: HEPATITIS C
     Dosage: 200 MG, TID
     Route: 048
     Dates: start: 20120716
  4. REBETOL [Suspect]

REACTIONS (2)
  - STOMATITIS [None]
  - BACK PAIN [None]
